FAERS Safety Report 9703965 (Version 1)
Quarter: 2013Q4

REPORT INFORMATION
  Report Type: Spontaneous
  Country: DK (occurrence: DK)
  Receive Date: 20131122
  Receipt Date: 20131122
  Transmission Date: 20140711
  Serious: Yes (Hospitalization)
  Sender: FDA-Public Use
  Company Number: DK-ROCHE-1307947

PATIENT
  Age: 67 Year
  Sex: Male

DRUGS (7)
  1. MABTHERA [Suspect]
     Indication: B-CELL LYMPHOMA
     Dosage: DOSE : 800 MG TIMES ONCE AS 3 DISPOSABLE PRESCRIPTIONS
     Route: 065
     Dates: start: 20121123, end: 20130104
  2. CYCLOPHOSPHAMIDE [Concomitant]
     Indication: PRODUCT USED FOR UNKNOWN INDICATION
     Route: 065
     Dates: start: 2012, end: 2012
  3. VINCRISTIN [Concomitant]
     Indication: PRODUCT USED FOR UNKNOWN INDICATION
     Dosage: 1MG/ML
     Route: 042
     Dates: start: 201211, end: 201301
  4. DOXORUBICIN [Concomitant]
     Indication: PRODUCT USED FOR UNKNOWN INDICATION
     Dosage: STYRKE: 2MG/ML
     Route: 065
     Dates: start: 201211, end: 201301
  5. PREDNISOLON [Concomitant]
     Indication: PRODUCT USED FOR UNKNOWN INDICATION
     Route: 048
     Dates: start: 201211, end: 201301
  6. GASTRO-TIMELETS [Concomitant]
     Indication: PRODUCT USED FOR UNKNOWN INDICATION
     Route: 048
     Dates: start: 201211, end: 201301
  7. ONDANSETRON [Concomitant]
     Route: 065
     Dates: start: 201211, end: 201301

REACTIONS (3)
  - Pulmonary fibrosis [Not Recovered/Not Resolved]
  - Dyspnoea [Not Recovered/Not Resolved]
  - Cough [Unknown]
